FAERS Safety Report 6969499-0 (Version None)
Quarter: 2010Q3

REPORT INFORMATION
  Report Type: 
  Country: None (occurrence: None)
  Receive Date: 20100907
  Receipt Date: 20100907
  Transmission Date: 20110219
  Serious: No
  Sender: FDA-Public Use
  Company Number: None

PATIENT
  Age: 61 Year
  Sex: Male

DRUGS (1)
  1. VARENICLINE [Suspect]
     Indication: SMOKING CESSATION THERAPY
     Dosage: 1 MG EVERY DAY PO
     Route: 048
     Dates: start: 20091223, end: 20100214

REACTIONS (3)
  - ANXIETY [None]
  - DECREASED APPETITE [None]
  - NAUSEA [None]
